FAERS Safety Report 22319028 (Version 1)
Quarter: 2023Q2

REPORT INFORMATION
  Report Type: Spontaneous
  Country: FR (occurrence: FR)
  Receive Date: 20230515
  Receipt Date: 20230515
  Transmission Date: 20230722
  Serious: Yes (Other)
  Sender: FDA-Public Use
  Company Number: FR-TAKEDA-2022TUS029652

PATIENT
  Age: 52 Year
  Sex: Male
  Weight: 71.6 kg

DRUGS (6)
  1. DEXAMETHASONE [Suspect]
     Active Substance: DEXAMETHASONE
     Indication: Hodgkin^s disease refractory
     Dosage: UNK
     Route: 065
     Dates: start: 20220402
  2. CYTARABINE [Suspect]
     Active Substance: CYTARABINE
     Indication: Hodgkin^s disease refractory
     Dosage: UNK
     Route: 065
     Dates: start: 20220402
  3. BRENTUXIMAB VEDOTIN [Suspect]
     Active Substance: BRENTUXIMAB VEDOTIN
     Indication: Hodgkin^s disease refractory
     Dosage: 1.8 MG/KG, Q3W
     Route: 042
     Dates: start: 20220402, end: 20220402
  4. BRENTUXIMAB VEDOTIN [Suspect]
     Active Substance: BRENTUXIMAB VEDOTIN
     Dosage: 1.8 MG/KG, Q3W
     Route: 042
     Dates: start: 20220428, end: 20220628
  5. PLATINOL [Suspect]
     Active Substance: CISPLATIN
     Indication: Hodgkin^s disease refractory
     Dosage: UNK
     Route: 065
     Dates: start: 20220402
  6. CYTARABINE [Suspect]
     Active Substance: CYTARABINE
     Indication: Hodgkin^s disease refractory
     Dosage: UNK
     Route: 065
     Dates: start: 20220402

REACTIONS (10)
  - Pancytopenia [Unknown]
  - Gamma-glutamyltransferase abnormal [Unknown]
  - Platelet count decreased [Unknown]
  - Blood chloride abnormal [Unknown]
  - Anaemia [Unknown]
  - Blood alkaline phosphatase abnormal [Recovered/Resolved]
  - White blood cell disorder [Unknown]
  - Blood bicarbonate abnormal [Unknown]
  - Blood lactate dehydrogenase abnormal [Unknown]
  - Blood urea increased [Unknown]

NARRATIVE: CASE EVENT DATE: 20220427
